FAERS Safety Report 12509682 (Version 1)
Quarter: 2016Q2

REPORT INFORMATION
  Report Type: Spontaneous
  Country: IN (occurrence: IN)
  Receive Date: 20160629
  Receipt Date: 20160629
  Transmission Date: 20160815
  Serious: Yes (Death, Life-Threatening, Other)
  Sender: FDA-Public Use
  Company Number: IN-WATSON-2016-14354

PATIENT
  Age: 13 Year
  Sex: Male

DRUGS (5)
  1. ETOPOSIDE (UNKNOWN) [Suspect]
     Active Substance: ETOPOSIDE
     Indication: GERM CELL CANCER
     Dosage: 100 MG/M2, DAILY - DAY 1?5; EVERY 3 WEEKS
     Route: 042
  2. CISPLATIN (UNKNOWN) [Suspect]
     Active Substance: CISPLATIN
     Indication: GERM CELL CANCER
     Dosage: 20 MG/M2, DAILY - DAY 1?5; EVERY 3 WEEKS
     Route: 042
  3. CETIRIZINE [Concomitant]
     Active Substance: CETIRIZINE HYDROCHLORIDE
     Indication: FLAGELLATE DERMATITIS
     Dosage: 5 MG, QHS
     Route: 048
  4. BETAMETHASONE. [Concomitant]
     Active Substance: BETAMETHASONE
     Indication: FLAGELLATE DERMATITIS
     Dosage: UNK
     Route: 061
  5. BLEOMYCIN [Concomitant]
     Active Substance: BLEOMYCIN SULFATE
     Indication: GERM CELL CANCER
     Dosage: 15 UNITS/M^2 DAY 1; EVERY 3 WEEKS
     Route: 042

REACTIONS (2)
  - Septic shock [Fatal]
  - Febrile neutropenia [Fatal]
